FAERS Safety Report 14296429 (Version 1)
Quarter: 2017Q4

REPORT INFORMATION
  Report Type: Spontaneous
  Country: US (occurrence: US)
  Receive Date: 20171215
  Receipt Date: 20171215
  Transmission Date: 20180321
  Serious: No
  Sender: FDA-Public Use
  Company Number: None

PATIENT
  Sex: Female

DRUGS (1)
  1. RASUVO [Suspect]
     Active Substance: METHOTREXATE SODIUM
     Indication: ANKYLOSING SPONDYLITIS
     Dosage: 15 MG (0.3 ML) Q WEEKLY SUBQ
     Route: 058
     Dates: start: 201709

REACTIONS (3)
  - Pain in jaw [None]
  - Therapy non-responder [None]
  - Lymphadenopathy [None]
